FAERS Safety Report 19145527 (Version 1)
Quarter: 2021Q2

REPORT INFORMATION
  Report Type: Spontaneous
  Country: US (occurrence: US)
  Receive Date: 20210416
  Receipt Date: 20210416
  Transmission Date: 20210717
  Serious: Yes (Other)
  Sender: FDA-Public Use
  Company Number: None

PATIENT
  Age: 9 Year
  Sex: Male

DRUGS (1)
  1. IRON DEXTRAN [Suspect]
     Active Substance: IRON DEXTRAN
     Indication: IRON DEFICIENCY ANAEMIA
     Dosage: ?          OTHER FREQUENCY:ONE TIME DOSE;?
     Route: 042
     Dates: start: 20210110

REACTIONS (1)
  - Nonspecific reaction [None]

NARRATIVE: CASE EVENT DATE: 20210110
